FAERS Safety Report 11881141 (Version 1)
Quarter: 2015Q4

REPORT INFORMATION
  Report Type: Spontaneous
  Country: JP (occurrence: JP)
  Receive Date: 20151231
  Receipt Date: 20151231
  Transmission Date: 20160305
  Serious: Yes (Death)
  Sender: FDA-Public Use
  Company Number: JP-B.I. PHARMACEUTICALS,INC./RIDGEFIELD-2015-BI-38141NB

PATIENT
  Age: 82 Year
  Sex: Female

DRUGS (2)
  1. GILOTRIF [Suspect]
     Active Substance: AFATINIB
     Dosage: 30 MG
     Route: 048
     Dates: start: 20140708, end: 20150707
  2. GILOTRIF [Suspect]
     Active Substance: AFATINIB
     Indication: LUNG ADENOCARCINOMA
     Dosage: 40 MG
     Route: 048
     Dates: start: 20140610, end: 20140707

REACTIONS (4)
  - Diarrhoea [Recovered/Resolved]
  - Dermatitis acneiform [Not Recovered/Not Resolved]
  - Death [Fatal]
  - Ingrowing nail [Not Recovered/Not Resolved]

NARRATIVE: CASE EVENT DATE: 20140615
